FAERS Safety Report 25413939 (Version 2)
Quarter: 2025Q2

REPORT INFORMATION
  Report Type: Spontaneous
  Country: US (occurrence: US)
  Receive Date: 20250609
  Receipt Date: 20250612
  Transmission Date: 20250717
  Serious: No
  Sender: BIOGEN
  Company Number: US-BIOGEN-2025BI01311824

PATIENT
  Sex: Male

DRUGS (3)
  1. VUMERITY [Suspect]
     Active Substance: DIROXIMEL FUMARATE
     Indication: Multiple sclerosis
     Dosage: TAKE 2 CAPSULES (462 MG TOTAL) BY MOUTH 2 (TWO) TIMES A DAY IN THE MORNING AND EVENING. STARTED A...
     Route: 050
  2. VUMERITY [Suspect]
     Active Substance: DIROXIMEL FUMARATE
     Dosage: 1 TABLET TWICE A DAY
     Route: 050
  3. VUMERITY [Suspect]
     Active Substance: DIROXIMEL FUMARATE
     Route: 050

REACTIONS (6)
  - Intentional product misuse [Unknown]
  - Abdominal discomfort [Unknown]
  - Wheezing [Unknown]
  - Gastrointestinal disorder [Unknown]
  - Flushing [Unknown]
  - Hypersensitivity [Unknown]
